FAERS Safety Report 6239602-9 (Version None)
Quarter: 2009Q2

REPORT INFORMATION
  Report Type: 
  Country: None (occurrence: None)
  Receive Date: 20090619
  Receipt Date: 20090610
  Transmission Date: 20091009
  Serious: Yes (Hospitalization, Disabling, Other)
  Sender: FDA-Public Use
  Company Number: POMP-1000542

PATIENT
  Sex: Female
  Weight: 60 kg

DRUGS (5)
  1. MYOZYME [Suspect]
     Indication: GLYCOGEN STORAGE DISEASE TYPE II
     Dosage: 1200 MG, Q2W, INTRAVENOUS
     Route: 042
     Dates: start: 20060601, end: 20090201
  2. LORAZEPAM [Concomitant]
  3. XANAX [Concomitant]
  4. LEXOTAN (BROMAZEPAM) [Concomitant]
  5. EUTIMIL (PAROXETINE) [Concomitant]

REACTIONS (4)
  - DISEASE PROGRESSION [None]
  - FATIGUE [None]
  - GLYCOGEN STORAGE DISEASE TYPE II [None]
  - RESPIRATORY DISORDER [None]
